FAERS Safety Report 5638710-0 (Version None)
Quarter: 2008Q1

REPORT INFORMATION
  Report Type: 
  Country: None (occurrence: None)
  Receive Date: 20080226
  Receipt Date: 20071211
  Transmission Date: 20080703
  Serious: No
  Sender: FDA-Public Use
  Company Number: A0698364A

PATIENT
  Age: 51 Year
  Sex: Female

DRUGS (4)
  1. IMITREX [Suspect]
     Indication: MIGRAINE
     Dosage: 6MG AS REQUIRED
     Route: 058
     Dates: start: 20061001
  2. MS CONTIN [Concomitant]
  3. PROTONIX [Concomitant]
  4. PROPRANOLOL [Concomitant]

REACTIONS (3)
  - INJECTION SITE IRRITATION [None]
  - INJECTION SITE URTICARIA [None]
  - PHARMACEUTICAL PRODUCT COMPLAINT [None]
